FAERS Safety Report 9422931 (Version 1)
Quarter: 2013Q3

REPORT INFORMATION
  Report Type: Report from Study
  Country: US (occurrence: US)
  Receive Date: 20130726
  Receipt Date: 20130726
  Transmission Date: 20140515
  Serious: Yes (Other)
  Sender: FDA-Public Use
  Company Number: US-ROCHE-1252355

PATIENT
  Sex: Female

DRUGS (10)
  1. XOLAIR [Suspect]
     Indication: PRODUCT USED FOR UNKNOWN INDICATION
     Route: 058
  2. OMEPRAZOLE [Concomitant]
     Route: 048
  3. ALBUTEROL SULFATE [Concomitant]
     Route: 055
  4. CETIRIZINE [Concomitant]
     Route: 048
  5. EPIPEN [Concomitant]
     Route: 058
  6. FLUTICASONE [Concomitant]
     Route: 045
  7. DULERA [Concomitant]
     Route: 055
  8. ALBUTEROL NEBULIZER [Concomitant]
  9. TOPIRAMATE [Concomitant]
     Route: 048
  10. CARBATROL [Concomitant]
     Route: 048

REACTIONS (10)
  - Otitis media chronic [Unknown]
  - Sleep apnoea syndrome [Unknown]
  - Convulsion [Unknown]
  - Headache [Unknown]
  - Upper respiratory tract infection [Recovered/Resolved]
  - Nasal congestion [Recovered/Resolved]
  - Rhinorrhoea [Recovered/Resolved]
  - Tympanic membrane hyperaemia [Not Recovered/Not Resolved]
  - Pharyngeal erythema [Recovered/Resolved]
  - Pharyngeal disorder [Recovered/Resolved]
